FAERS Safety Report 10347167 (Version 1)
Quarter: 2014Q3

REPORT INFORMATION
  Report Type: Spontaneous
  Country: TR (occurrence: TR)
  Receive Date: 20140729
  Receipt Date: 20140729
  Transmission Date: 20150326
  Serious: Yes (Hospitalization)
  Sender: FDA-Public Use
  Company Number: TR-NOVOPROD-417111

PATIENT
  Age: 12 Year
  Sex: Male
  Weight: 37 kg

DRUGS (2)
  1. NORDITROPIN [Suspect]
     Active Substance: SOMATROPIN
     Dosage: UNK
     Route: 065
  2. NORDITROPIN [Suspect]
     Active Substance: SOMATROPIN
     Indication: PRODUCT USED FOR UNKNOWN INDICATION
     Dosage: UNK
     Route: 065

REACTIONS (1)
  - Testicular disorder [Recovered/Resolved]
